FAERS Safety Report 8220947-8 (Version None)
Quarter: 2012Q1

REPORT INFORMATION
  Report Type: 
  Country: None (occurrence: None)
  Receive Date: 20120320
  Receipt Date: 20120309
  Transmission Date: 20120608
  Serious: Yes (Other)
  Sender: FDA-Public Use
  Company Number: US-BRISTOL-MYERS SQUIBB COMPANY-16447211

PATIENT
  Age: 60 Year
  Sex: Female
  Weight: 117 kg

DRUGS (2)
  1. PACLITAXEL [Suspect]
     Indication: NON-SMALL CELL LUNG CANCER
     Dosage: REG 1- RECENT DOSE 668MG-29JUL10
     Route: 042
     Dates: start: 20100707, end: 20100729
  2. CARBOPLATIN [Suspect]
     Indication: NON-SMALL CELL LUNG CANCER
     Dosage: RECENT DOSE 976MG-29JUL10
     Route: 042
     Dates: start: 20100707, end: 20100729

REACTIONS (3)
  - PERIPHERAL SENSORY NEUROPATHY [None]
  - PLEURITIC PAIN [None]
  - OROPHARYNGEAL PAIN [None]
